FAERS Safety Report 21061558 (Version 9)
Quarter: 2023Q4

REPORT INFORMATION
  Report Type: Spontaneous
  Country: CA (occurrence: CA)
  Receive Date: 20220709
  Receipt Date: 20231114
  Transmission Date: 20240109
  Serious: Yes (Other)
  Sender: FDA-Public Use
  Company Number: CA-CELLTRION INC.-2022CA008492

PATIENT

DRUGS (7)
  1. INFLECTRA [Suspect]
     Active Substance: INFLIXIMAB-DYYB
     Indication: Crohn^s disease
     Dosage: 7500 UG/KG, EVERY 6 WEEKS (ROUNDED TO THE NEAREST HUNDRED)
     Route: 042
     Dates: start: 20220527
  2. INFLECTRA [Suspect]
     Active Substance: INFLIXIMAB-DYYB
     Dosage: 600 MG (SHOULD RECEIVE 7.5 MG/KG)
     Route: 042
     Dates: start: 20220718
  3. INFLECTRA [Suspect]
     Active Substance: INFLIXIMAB-DYYB
     Dosage: 7500 UG/KG, EVERY 6 WEEKS (ROUNDED TO THE NEAREST HUNDRED)
     Route: 042
     Dates: start: 20230622
  4. INFLECTRA [Suspect]
     Active Substance: INFLIXIMAB-DYYB
     Dosage: 600MG, EVERY 6 WEEKS
     Route: 042
     Dates: start: 20230803
  5. INFLECTRA [Suspect]
     Active Substance: INFLIXIMAB-DYYB
     Dosage: 600MG, 6 WEEKS AND 1 DAY
     Dates: start: 20230915
  6. INFLECTRA [Suspect]
     Active Substance: INFLIXIMAB-DYYB
     Dosage: 7.5 MG/KG, EVERY 6 WEEKS (600MG AFTER 6 WEEKS)
     Dates: start: 20231103
  7. METHOTREXATE [Concomitant]
     Active Substance: METHOTREXATE
     Dosage: 1 DF

REACTIONS (10)
  - Haematochezia [Unknown]
  - Loss of consciousness [Recovered/Resolved]
  - Rectal haemorrhage [Recovered/Resolved]
  - Seasonal allergy [Unknown]
  - COVID-19 [Not Recovered/Not Resolved]
  - Heart rate decreased [Not Recovered/Not Resolved]
  - Condition aggravated [Recovered/Resolved]
  - Intentional product use issue [Unknown]
  - Off label use [Unknown]
  - Off label use [Unknown]

NARRATIVE: CASE EVENT DATE: 20220527
